FAERS Safety Report 6830566-3 (Version None)
Quarter: 2010Q3

REPORT INFORMATION
  Report Type: 
  Country: None (occurrence: None)
  Receive Date: 20100712
  Receipt Date: 20100628
  Transmission Date: 20110219
  Serious: Yes (Hospitalization)
  Sender: FDA-Public Use
  Company Number: FR-ELI_LILLY_AND_COMPANY-FR201006007049

PATIENT
  Sex: Male

DRUGS (4)
  1. EFFIENT [Suspect]
     Dosage: UNK, UNKNOWN
     Route: 048
     Dates: start: 20100501, end: 20100611
  2. PREVISCAN [Concomitant]
     Dosage: UNK, UNKNOWN
     Route: 065
  3. KARDEGIC [Concomitant]
     Dosage: UNK, UNKNOWN
     Route: 065
     Dates: start: 20100101
  4. CORDARONE [Concomitant]
     Dosage: UNK, UNKNOWN
     Route: 065

REACTIONS (2)
  - DRUG HYPERSENSITIVITY [None]
  - RENAL FAILURE ACUTE [None]
